FAERS Safety Report 23644461 (Version 2)
Quarter: 2024Q1

REPORT INFORMATION
  Report Type: Spontaneous
  Country: US (occurrence: US)
  Receive Date: 20240318
  Receipt Date: 20240320
  Transmission Date: 20240409
  Serious: Yes (Other)
  Sender: FDA-Public Use
  Company Number: US-SA-SAC20240308000313

PATIENT

DRUGS (1)
  1. LARONIDASE [Suspect]
     Active Substance: LARONIDASE
     Indication: Mucopolysaccharidosis I
     Dosage: 8.7 (UNKNOWN UNITS), QW
     Route: 042
     Dates: start: 20230621

REACTIONS (3)
  - Graft versus host disease [Unknown]
  - Immune system disorder [Unknown]
  - Viral infection [Unknown]
